FAERS Safety Report 7611570-4 (Version None)
Quarter: 2011Q3

REPORT INFORMATION
  Report Type: 
  Country: None (occurrence: None)
  Receive Date: 20110715
  Receipt Date: 20110711
  Transmission Date: 20111222
  Serious: Yes (Hospitalization, Other)
  Sender: FDA-Public Use
  Company Number: US-GLAXOSMITHKLINE-A0933458A

PATIENT
  Age: 77 Year
  Sex: Male

DRUGS (4)
  1. CONCURRENT MEDICATIONS [Concomitant]
  2. KLOR-CON [Concomitant]
  3. ADVAIR DISKUS 100/50 [Suspect]
     Indication: EMPHYSEMA
     Dosage: 1PUFF TWICE PER DAY
     Route: 055
     Dates: start: 20080101
  4. VERAPAMIL [Concomitant]

REACTIONS (2)
  - HERPES ZOSTER [None]
  - BLINDNESS UNILATERAL [None]
